FAERS Safety Report 15714134 (Version 2)
Quarter: 2019Q2

REPORT INFORMATION
  Report Type: Spontaneous
  Country: US (occurrence: US)
  Receive Date: 20181212
  Receipt Date: 20190508
  Transmission Date: 20190711
  Serious: Yes (Hospitalization, Other)
  Sender: FDA-Public Use
  Company Number: US-PFIZER INC-2018508782

PATIENT
  Sex: Female
  Weight: 136 kg

DRUGS (2)
  1. PHENERGAN [Interacting]
     Active Substance: PROMETHAZINE HYDROCHLORIDE
     Dosage: UNK, 2X/DAY
     Route: 048
  2. TIKOSYN [Suspect]
     Active Substance: DOFETILIDE
     Indication: ATRIAL FIBRILLATION
     Dosage: 500 UG, 2X/DAY
     Route: 048

REACTIONS (6)
  - Torsade de pointes [Unknown]
  - Dizziness [Unknown]
  - Loss of consciousness [Unknown]
  - Syncope [Unknown]
  - Drug interaction [Unknown]
  - Fall [Unknown]

NARRATIVE: CASE EVENT DATE: 2013
